FAERS Safety Report 16089240 (Version 1)
Quarter: 2019Q2

REPORT INFORMATION
  Report Type: Spontaneous
  Country: US (occurrence: US)
  Receive Date: 20190319
  Receipt Date: 20190319
  Transmission Date: 20190711
  Serious: Yes (Other)
  Sender: FDA-Public Use
  Company Number: None

PATIENT
  Age: 58 Year
  Sex: Male
  Weight: 90 kg

DRUGS (20)
  1. ALPRAZOLAM. [Concomitant]
     Active Substance: ALPRAZOLAM
  2. CLOPIDOGREL BUSULFATE [Concomitant]
  3. LEVEMIR [Concomitant]
     Active Substance: INSULIN DETEMIR
  4. ATORVASTATIN CALCIUM. [Concomitant]
     Active Substance: ATORVASTATIN CALCIUM
  5. TYLENOL WITH CODEINE #4 [Concomitant]
  6. GABAPENTIN. [Concomitant]
     Active Substance: GABAPENTIN
  7. TERAZOSIN [Concomitant]
     Active Substance: TERAZOSIN\TERAZOSIN HYDROCHLORIDE
  8. ZYTIGA [Suspect]
     Active Substance: ABIRATERONE ACETATE
     Indication: PROSTATE CANCER
     Route: 048
     Dates: start: 20170825, end: 20181227
  9. VALSARTAN. [Concomitant]
     Active Substance: VALSARTAN
  10. PANTOPRAZOLE SODIUM. [Concomitant]
     Active Substance: PANTOPRAZOLE SODIUM
  11. INVOKANA [Concomitant]
     Active Substance: CANAGLIFLOZIN
  12. LEXAPRO [Concomitant]
     Active Substance: ESCITALOPRAM OXALATE
  13. ABIRATERONE ACETATE. [Suspect]
     Active Substance: ABIRATERONE ACETATE
     Indication: PROSTATE CANCER
     Route: 048
     Dates: start: 20181228
  14. ASPIRIN ADULT LOW DOSE [Concomitant]
     Active Substance: ASPIRIN
  15. METFORMIN [Concomitant]
     Active Substance: METFORMIN HYDROCHLORIDE
  16. FUROSEMIDE. [Concomitant]
     Active Substance: FUROSEMIDE
  17. SPIRONOLATONE [Concomitant]
     Active Substance: SPIRONOLACTONE
  18. PREDNISONE. [Concomitant]
     Active Substance: PREDNISONE
  19. GLIPIZIDE ER [Concomitant]
     Active Substance: GLIPIZIDE
  20. CARVEDILOL. [Concomitant]
     Active Substance: CARVEDILOL

REACTIONS (1)
  - Disease progression [None]
